FAERS Safety Report 14869832 (Version 1)
Quarter: 2018Q2

REPORT INFORMATION
  Report Type: Spontaneous
  Country: US (occurrence: US)
  Receive Date: 20180509
  Receipt Date: 20180509
  Transmission Date: 20180711
  Serious: Yes (Other)
  Sender: FDA-Public Use
  Company Number: US-ELI_LILLY_AND_COMPANY-US201804015075

PATIENT
  Sex: Female

DRUGS (4)
  1. ALIMTA [Suspect]
     Active Substance: PEMETREXED DISODIUM
     Dosage: AS MAINTENANCE THERAPY
     Route: 065
  2. FOLIC ACID. [Concomitant]
     Active Substance: FOLIC ACID
     Indication: PRODUCT USED FOR UNKNOWN INDICATION
     Dosage: UNK UNK, UNKNOWN
     Route: 065
  3. CARBOPLATIN. [Concomitant]
     Active Substance: CARBOPLATIN
     Indication: PRODUCT USED FOR UNKNOWN INDICATION
     Dosage: UNK UNK, UNKNOWN
     Route: 065
  4. ALIMTA [Suspect]
     Active Substance: PEMETREXED DISODIUM
     Indication: PRODUCT USED FOR UNKNOWN INDICATION
     Dosage: IN COMBINATION WITH CARBOPLATIN
     Route: 065

REACTIONS (10)
  - Cough [Unknown]
  - Fatigue [Recovered/Resolved]
  - Hypopnoea [Not Recovered/Not Resolved]
  - Influenza [Recovered/Resolved]
  - Pneumonitis [Unknown]
  - Pyrexia [Unknown]
  - Influenza like illness [Unknown]
  - Chest pain [Unknown]
  - Respiration abnormal [Not Recovered/Not Resolved]
  - Off label use [Unknown]
